FAERS Safety Report 17711953 (Version 1)
Quarter: 2020Q2

REPORT INFORMATION
  Report Type: Spontaneous
  Country: DE (occurrence: DE)
  Receive Date: 20200427
  Receipt Date: 20200427
  Transmission Date: 20200714
  Serious: Yes (Hospitalization)
  Sender: FDA-Public Use
  Company Number: DE-PFIZER INC-2020162620

PATIENT
  Age: 81 Year
  Sex: Male

DRUGS (15)
  1. PANTOPRAZOL [PANTOPRAZOLE] [Concomitant]
     Active Substance: PANTOPRAZOLE
     Dosage: 40 MG, 1X/DAY (1-0-0-0)
  2. TORASEMID [Concomitant]
     Active Substance: TORSEMIDE
     Dosage: 10 MG, 1X/DAY (1-0-0-0)
  3. BALDRIAN [VALERIANA OFFICINALIS] [Concomitant]
     Active Substance: VALERIAN
     Dosage: 200 MG, 1X/DAY(0-0-0-1)
  4. PREGABALIN. [Suspect]
     Active Substance: PREGABALIN
     Dosage: 75 MG, 2X/DAY (1-0-1-0)
  5. LEVETIRACETAM. [Suspect]
     Active Substance: LEVETIRACETAM
     Dosage: 500 MG, 2X/DAY (1-0-1-0)
  6. FENTANYL. [Suspect]
     Active Substance: FENTANYL
     Dosage: 0.0125 MG/H (AS PLANNED)
  7. RAMIPRIL. [Concomitant]
     Active Substance: RAMIPRIL
     Dosage: 5 MG, 2X/DAY (1-0-1-0)
  8. METAMIZOLE [Concomitant]
     Active Substance: METAMIZOLE
     Dosage: 500 MG, 4X/DAY (1-1-1-1)
  9. SITAGLIPTIN [Concomitant]
     Active Substance: SITAGLIPTIN
     Dosage: 50 MG, 1X/DAY (1-0-0-0)
  10. FENTANYL. [Suspect]
     Active Substance: FENTANYL
     Dosage: 0.025 MG/H (AS PLANNED)
  11. METFORMIN [Concomitant]
     Active Substance: METFORMIN HYDROCHLORIDE
     Dosage: 850 MG, DAILY ( 0.5-0-0.5-0)
  12. IRON [Concomitant]
     Active Substance: IRON
     Dosage: 100 MG, 2X/DAY (1-0-1-0)
  13. AMLODIPINE [Concomitant]
     Active Substance: AMLODIPINE BESYLATE
     Dosage: 5 MG, 1X/DAY(0-1-0-0)
  14. FLUVASTATIN [Concomitant]
     Active Substance: FLUVASTATIN SODIUM
     Dosage: 40 MG, 1X/DAY (0-0-1-0)
  15. LAXOBERAL [Concomitant]
     Active Substance: SODIUM PICOSULFATE
     Dosage: 7.5 MG, 1X/DAY (0-0-12-0 DROPS)

REACTIONS (4)
  - Dehydration [Unknown]
  - General physical health deterioration [Unknown]
  - Thirst [Unknown]
  - Fall [Unknown]
